FAERS Safety Report 5115908-1 (Version None)
Quarter: 2006Q3

REPORT INFORMATION
  Report Type: 
  Country: None (occurrence: None)
  Receive Date: 20060927
  Receipt Date: 20050824
  Transmission Date: 20061208
  Serious: Yes (Other)
  Sender: FDA-Public Use
  Company Number: US-BRISTOL-MYERS SQUIBB COMPANY-13090568

PATIENT
  Age: 70 Year
  Sex: Female

DRUGS (2)
  1. DEFINITY [Suspect]
     Indication: STRESS ECHOCARDIOGRAM
     Route: 040
     Dates: start: 20050824, end: 20050824
  2. DOBUTAMINE HCL [Suspect]

REACTIONS (2)
  - BACK PAIN [None]
  - HYPOTENSION [None]
